FAERS Safety Report 15892311 (Version 1)
Quarter: 2019Q1

REPORT INFORMATION
  Report Type: Report from Study
  Country: US (occurrence: US)
  Receive Date: 20190130
  Receipt Date: 20190130
  Transmission Date: 20190417
  Serious: No
  Sender: FDA-Public Use
  Company Number: US-EXELIXIS-CABO-18014472

PATIENT
  Age: 60 Year
  Sex: Male

DRUGS (2)
  1. MORPHINE [Concomitant]
     Active Substance: MORPHINE
     Dosage: UNK
  2. CABOMETYX [Suspect]
     Active Substance: CABOZANTINIB S-MALATE
     Indication: RENAL CANCER
     Dosage: 60 MG, QD (AM, WITHOUT FOOD)
     Route: 048
     Dates: start: 20180527, end: 20180629

REACTIONS (10)
  - Pallor [Unknown]
  - Fatigue [Unknown]
  - Tongue discomfort [Unknown]
  - Chills [Unknown]
  - Dysphonia [Unknown]
  - Stomatitis [Unknown]
  - Confusional state [Unknown]
  - Diarrhoea [Recovered/Resolved]
  - Insomnia [Unknown]
  - Hallucination [Unknown]

NARRATIVE: CASE EVENT DATE: 20180529
